FAERS Safety Report 9434194 (Version 1)
Quarter: 2013Q3

REPORT INFORMATION
  Report Type: Spontaneous
  Country: US (occurrence: None)
  Receive Date: 20130730
  Receipt Date: 20130730
  Transmission Date: 20140515
  Serious: Yes (Hospitalization)
  Sender: FDA-Public Use
  Company Number: None

PATIENT
  Age: 6 Year
  Sex: Male
  Weight: 24.49 kg

DRUGS (1)
  1. VYVANSE 30MG SHIRE [Suspect]
     Indication: ATTENTION DEFICIT/HYPERACTIVITY DISORDER
     Dosage: 30MG QD PO
     Route: 048
     Dates: start: 20130725, end: 20130725

REACTIONS (7)
  - Abdominal pain upper [None]
  - Dyspnoea [None]
  - Dyskinesia [None]
  - Dyskinesia [None]
  - Electrocardiogram change [None]
  - Grunting [None]
  - Muscle rigidity [None]
